FAERS Safety Report 17130534 (Version 4)
Quarter: 2020Q1

REPORT INFORMATION
  Report Type: Report from Study
  Country: US (occurrence: US)
  Receive Date: 20191209
  Receipt Date: 20200317
  Transmission Date: 20200409
  Serious: Yes (Hospitalization)
  Sender: FDA-Public Use
  Company Number: US-PFIZER INC-2019525337

PATIENT
  Age: 57 Year
  Sex: Male
  Weight: 74 kg

DRUGS (28)
  1. IRINOTECAN HCL [Suspect]
     Active Substance: IRINOTECAN HYDROCHLORIDE
     Indication: NEOPLASM
     Dosage: 180 MG/M2, 1 IN 2 WK
     Route: 042
     Dates: start: 20190910, end: 20190910
  2. DEXAMETHASONE SODIUM PHOSPHATE. [Concomitant]
     Active Substance: DEXAMETHASONE SODIUM PHOSPHATE
     Indication: PREMEDICATION
     Dosage: 10 MG, AS REQUIRED
     Route: 042
     Dates: start: 20190910
  3. POTASSIUM CHLORIDE CR [Concomitant]
     Active Substance: POTASSIUM CHLORIDE
     Indication: HYPOKALAEMIA
     Dosage: 20 MEQ, 1 IN 1 D
     Route: 048
     Dates: start: 20191001
  4. MAGNESIUM SULFATE. [Concomitant]
     Active Substance: MAGNESIUM SULFATE
     Indication: HYPOMAGNESAEMIA
     Dosage: 2000 MG, AS REQUIRED
     Route: 042
     Dates: start: 20191029, end: 20191107
  5. ONDANSETRON [Concomitant]
     Active Substance: ONDANSETRON
     Indication: NAUSEA
     Dosage: 8 MG, AS REQUIRED
     Route: 048
     Dates: start: 20190909
  6. 5-FU [Suspect]
     Active Substance: FLUOROURACIL
     Indication: NEOPLASM
     Dosage: 400 MG/M2, 1 IN 2 WK
     Route: 042
     Dates: start: 20190910, end: 20190910
  7. LEUCOVORIN. [Suspect]
     Active Substance: LEUCOVORIN
     Dosage: 396 MG, UNK
     Route: 042
     Dates: start: 20191022, end: 20191105
  8. FLONASE [Concomitant]
     Active Substance: FLUTICASONE PROPIONATE
     Indication: SEASONAL ALLERGY
     Dosage: 2 SPRAYS (1 IN 1 D)
     Route: 045
     Dates: start: 201901
  9. SUCRALFATE. [Concomitant]
     Active Substance: SUCRALFATE
     Indication: GASTROOESOPHAGEAL REFLUX DISEASE
     Dosage: 30ML (10 ML, 3 IN 1 D)
     Route: 048
     Dates: start: 20190913
  10. 5-FU [Suspect]
     Active Substance: FLUOROURACIL
     Dosage: 2400 MG/M2, 1 IN 2 WK
     Route: 042
     Dates: start: 20190910, end: 20190912
  11. LEUCOVORIN. [Suspect]
     Active Substance: LEUCOVORIN
     Indication: NEOPLASM
     Dosage: 400 MG, UNK
     Route: 042
     Dates: start: 20190910, end: 20190910
  12. ABBV-621 [Suspect]
     Active Substance: EFTOZANERMIN ALFA
     Indication: NEOPLASM
     Dosage: 7.5 MG/KG,1 IN 1 WK
     Route: 042
     Dates: start: 20190910, end: 20190917
  13. MAGNESIUM [Concomitant]
     Active Substance: MAGNESIUM
     Indication: HYPERMAGNESAEMIA
     Dosage: 500 MG, 1 IN 1D
     Route: 048
     Dates: start: 2016
  14. NEXIUM I.V. [Concomitant]
     Active Substance: ESOMEPRAZOLE SODIUM
     Indication: GASTROOESOPHAGEAL REFLUX DISEASE
     Dosage: 40 MG, 1 IN 1 D
     Route: 048
     Dates: start: 2004
  15. FOSAPREPITANT [Concomitant]
     Active Substance: FOSAPREPITANT
     Indication: PREMEDICATION
     Dosage: 150 MG, AS REQUIRED
     Route: 042
     Dates: start: 20190910
  16. LOPERAMIDE [Concomitant]
     Active Substance: LOPERAMIDE
     Indication: DIARRHOEA
     Dosage: 2 MG, AS REQUIRED
     Route: 048
     Dates: start: 20191001
  17. ASPIRIN [ACETYLSALICYLIC ACID] [Concomitant]
     Active Substance: ASPIRIN
     Indication: PROPHYLAXIS
     Dosage: 81 MG, 1 IN DAY 1
     Route: 048
     Dates: start: 2017
  18. CRESTOR [Concomitant]
     Active Substance: ROSUVASTATIN CALCIUM
     Indication: HYPERLIPIDAEMIA
     Dosage: 5 MG, 1 IN DAY 1
     Route: 048
     Dates: start: 2018
  19. VITAMIN E [Concomitant]
     Active Substance: .ALPHA.-TOCOPHEROL
     Indication: SUPPLEMENTATION THERAPY
     Dosage: 180 MG, 1 IN 1 D
     Route: 048
     Dates: start: 2016
  20. ABBV-621 [Suspect]
     Active Substance: EFTOZANERMIN ALFA
     Dosage: 5 MG/KG,1 IN 1 WK
     Route: 042
     Dates: start: 20191015, end: 20191105
  21. MONTELUKAST SODIUM. [Concomitant]
     Active Substance: MONTELUKAST SODIUM
     Indication: SEASONAL ALLERGY
     Dosage: 10 MG, 1 IN 1 D
     Route: 048
     Dates: start: 201901
  22. VITAMIN B12 [Concomitant]
     Active Substance: CYANOCOBALAMIN
     Indication: SUPPLEMENTATION THERAPY
     Dosage: 40 MG, 1 IN 1D
     Route: 048
     Dates: start: 2016
  23. LOMOTIL [Concomitant]
     Active Substance: ATROPINE SULFATE\DIPHENOXYLATE HYDROCHLORIDE
     Indication: DIARRHOEA
     Dosage: 1-2 TABLETS AS REQUIRED
     Route: 048
     Dates: start: 20191001
  24. IRINOTECAN HCL [Suspect]
     Active Substance: IRINOTECAN HYDROCHLORIDE
     Dosage: 120 MG/M2, 1 IN 2 WK
     Route: 042
     Dates: start: 20191022, end: 20191105
  25. 5-FU [Suspect]
     Active Substance: FLUOROURACIL
     Dosage: 1584 MG/M2, 1 IN 2 WK
     Route: 042
     Dates: start: 20191022, end: 20191107
  26. LOSARTAN POTASSIUM. [Concomitant]
     Active Substance: LOSARTAN POTASSIUM
     Indication: HYPERTENSION
     Dosage: 50 MG, 1 IN 1 D
     Route: 048
     Dates: start: 2013
  27. PALONOSETRON HCL [Concomitant]
     Active Substance: PALONOSETRON HYDROCHLORIDE
     Indication: PREMEDICATION
     Dosage: 0.25 MG, AS REQUIRED
     Route: 042
     Dates: start: 20190910
  28. ATROPINE SULFATE. [Concomitant]
     Active Substance: ATROPINE SULFATE
     Indication: PREMEDICATION
     Dosage: 0.4 MG, AS REQUIRED
     Route: 042
     Dates: start: 20190910

REACTIONS (1)
  - Enteritis [Recovered/Resolved]

NARRATIVE: CASE EVENT DATE: 20191110
